FAERS Safety Report 5264275-1 (Version None)
Quarter: 2007Q1

REPORT INFORMATION
  Report Type: 
  Country: None (occurrence: None)
  Receive Date: 20070309
  Receipt Date: 20070301
  Transmission Date: 20070707
  Serious: Yes (Hospitalization)
  Sender: FDA-Public Use
  Company Number: 2006-06314

PATIENT
  Age: 36 Year
  Sex: Female

DRUGS (3)
  1. TRELSTAR DEPOT [Suspect]
     Indication: INFERTILITY
     Dosage: 0.05 MG, DAILY, SUBCUTANEOUS
     Route: 058
     Dates: start: 20061004
  2. GONAL-F [Suspect]
     Indication: INFERTILITY
     Dates: start: 20061027
  3. OVITRELLE () [Suspect]
     Indication: INFERTILITY
     Dosage: 250 UG, ONCE, SUBCUTANEOUS
     Route: 058
     Dates: start: 20061001, end: 20061001

REACTIONS (8)
  - ABDOMINAL PAIN UPPER [None]
  - ASTHENIA [None]
  - HAEMOLYTIC ANAEMIA [None]
  - OVARIAN HYPERSTIMULATION SYNDROME [None]
  - PELVIC FLUID COLLECTION [None]
  - RENAL FAILURE ACUTE [None]
  - THROMBOCYTOPENIA [None]
  - THROMBOTIC MICROANGIOPATHY [None]
